FAERS Safety Report 14107081 (Version 1)
Quarter: 2017Q4

REPORT INFORMATION
  Report Type: Spontaneous
  Country: US (occurrence: US)
  Receive Date: 20171019
  Receipt Date: 20171019
  Transmission Date: 20180321
  Serious: No
  Sender: FDA-Public Use
  Company Number: US-LANNETT COMPANY, INC.-US-2017LAN000940

PATIENT

DRUGS (1)
  1. LEVOTHYROXINE SODIUM. [Suspect]
     Active Substance: LEVOTHYROXINE SODIUM
     Indication: HYPERTHYROIDISM
     Dosage: 50 ?G, QD
     Route: 048
     Dates: start: 2017, end: 2017

REACTIONS (5)
  - Therapeutic response increased [Unknown]
  - Respiration abnormal [Unknown]
  - Malaise [Unknown]
  - Feeling abnormal [Unknown]
  - Tremor [Unknown]

NARRATIVE: CASE EVENT DATE: 2017
